FAERS Safety Report 10595805 (Version 2)
Quarter: 2015Q1

REPORT INFORMATION
  Report Type: Spontaneous
  Country: US (occurrence: US)
  Receive Date: 20141120
  Receipt Date: 20150209
  Transmission Date: 20150720
  Serious: Yes (Other)
  Sender: FDA-Public Use
  Company Number: US-PFIZER INC-2014315319

PATIENT
  Age: 45 Year
  Sex: Male

DRUGS (3)
  1. WARFARIN [Suspect]
     Active Substance: WARFARIN
     Dosage: UNK
  2. SUTENT [Suspect]
     Active Substance: SUNITINIB MALATE
     Dosage: UNK (12.5)
     Dates: start: 20141016, end: 20150119
  3. SUTENT [Suspect]
     Active Substance: SUNITINIB MALATE
     Indication: NEOPLASM MALIGNANT
     Dosage: STRENGHT 50, UNKNOWN DOSE
     Dates: start: 20141019

REACTIONS (5)
  - Neoplasm malignant [Unknown]
  - Disease progression [Unknown]
  - Tumour rupture [Unknown]
  - Dysgeusia [Unknown]
  - Hypoaesthesia [Unknown]

NARRATIVE: CASE EVENT DATE: 20141023
